FAERS Safety Report 9742448 (Version 1)
Quarter: 2013Q4

REPORT INFORMATION
  Report Type: Spontaneous
  Country: NZ (occurrence: NZ)
  Receive Date: 20131210
  Receipt Date: 20131210
  Transmission Date: 20140711
  Serious: Yes (Hospitalization)
  Sender: FDA-Public Use
  Company Number: NZ-BAXTER-2013BAX048631

PATIENT
  Sex: Female

DRUGS (2)
  1. DIANEAL (PD4) LOW CALCIUM SOLUTION WITH 1.36% GLUCOSE, DIALYSIS SOLUTI [Suspect]
     Indication: PERITONEAL DIALYSIS
     Route: 033
  2. EXTRANEAL, 7.5%W/V, DIALYSIS SOLUTION [Suspect]
     Indication: PERITONEAL DIALYSIS
     Route: 033

REACTIONS (2)
  - General physical health deterioration [Unknown]
  - Malaise [Unknown]
